FAERS Safety Report 4941909-X (Version None)
Quarter: 2006Q1

REPORT INFORMATION
  Report Type: 
  Country: None (occurrence: None)
  Receive Date: 20060313
  Receipt Date: 20050330
  Transmission Date: 20060701
  Serious: Yes (Hospitalization, Disabling, Other)
  Sender: FDA-Public Use
  Company Number: US-MERCK-0503USA05251

PATIENT
  Age: 55 Year
  Sex: Female
  Weight: 73 kg

DRUGS (13)
  1. VIOXX [Suspect]
     Indication: FIBROMYALGIA
     Route: 048
     Dates: start: 19990101, end: 20010101
  2. VIOXX [Suspect]
     Indication: ARTHRITIS
     Route: 048
     Dates: start: 19990101, end: 20010101
  3. LOTREL [Concomitant]
     Route: 065
  4. ELAVIL [Concomitant]
     Route: 065
  5. NORFLEX [Concomitant]
     Route: 065
  6. IBUPROFEN [Concomitant]
     Route: 065
  7. NORVASC [Concomitant]
     Route: 065
  8. CYCLOBENZAPRINE HYDROCHLORIDE [Concomitant]
     Route: 065
  9. ESTRATEST [Concomitant]
     Route: 065
  10. ZYRTEC [Concomitant]
     Route: 065
  11. SONATA [Concomitant]
     Route: 065
  12. ORPHENADRINE [Concomitant]
     Route: 065
  13. AMITRIPTYLINE HYDROCHLORIDE [Concomitant]
     Route: 065

REACTIONS (5)
  - ANXIETY [None]
  - BLOOD CHOLESTEROL INCREASED [None]
  - CEREBROVASCULAR ACCIDENT [None]
  - INJURY [None]
  - INTERVERTEBRAL DISC PROTRUSION [None]
